FAERS Safety Report 10847187 (Version 1)
Quarter: 2015Q1

REPORT INFORMATION
  Report Type: Report from Study
  Country: GB (occurrence: GB)
  Receive Date: 20150220
  Receipt Date: 20150220
  Transmission Date: 20150721
  Serious: Yes (Life-Threatening, Hospitalization)
  Sender: FDA-Public Use
  Company Number: GB-INCYTE CORPORATION-2015IN000585

PATIENT
  Age: 67 Year
  Sex: Female
  Weight: 67 kg

DRUGS (1)
  1. INC424 [Suspect]
     Active Substance: RUXOLITINIB
     Indication: POLYCYTHAEMIA VERA
     Dosage: 45 MG, DAILY (25 MG AM / 20 MG PM)
     Route: 048
     Dates: start: 20130320, end: 20150205

REACTIONS (1)
  - Herpes zoster meningoencephalitis [Recovering/Resolving]

NARRATIVE: CASE EVENT DATE: 20150202
